FAERS Safety Report 13585239 (Version 1)
Quarter: 2017Q2

REPORT INFORMATION
  Report Type: Spontaneous
  Country: US (occurrence: US)
  Receive Date: 20170526
  Receipt Date: 20170526
  Transmission Date: 20170830
  Serious: No
  Sender: FDA-Public Use
  Company Number: US-MALLINCKRODT-T201601617

PATIENT
  Sex: Female
  Weight: 118 kg

DRUGS (21)
  1. HYDROCODONE/ACETAMINOPHEN [Suspect]
     Active Substance: ACETAMINOPHEN\HYDROCODONE
     Dosage: 7.5/325 MG, ONE TABLET EVERY 6 HOURS
  2. OSCAL D [Concomitant]
     Active Substance: CALCIUM CARBONATE\CHOLECALCIFEROL
     Indication: OSTEOPOROSIS
     Dosage: 500MG TABLET DAILY
  3. FOSAMAX [Concomitant]
     Active Substance: ALENDRONATE SODIUM
     Dosage: 70MG TABLET WEEKLY
     Dates: start: 2006
  4. VOLTAREN [Concomitant]
     Active Substance: DICLOFENAC SODIUM
     Indication: PAIN
     Dosage: 2-4 GRAMS DAILY
     Dates: start: 2013
  5. PRILOSEC [Concomitant]
     Active Substance: OMEPRAZOLE MAGNESIUM
     Indication: DYSPEPSIA
     Dosage: 20MG TABLET ONCE DAILY
     Dates: start: 1996
  6. ASPIRIN. [Concomitant]
     Active Substance: ASPIRIN
     Dosage: 81MG TABLET ONCE DAILY
     Dates: start: 1995
  7. HYDROCODONE/ACETAMINOPHEN [Suspect]
     Active Substance: ACETAMINOPHEN\HYDROCODONE
     Indication: PAIN
     Dosage: 5/325 MG; 1 TABLET EVERY 6 HOURS
     Route: 065
  8. CENTRUM SILVER [Concomitant]
     Active Substance: MINERALS\VITAMINS
     Dosage: 1 TABLET EVERY MORNING
  9. VITAMIN D3 [Concomitant]
     Active Substance: CHOLECALCIFEROL
     Dosage: 5000IU ONE TABLET EVERY MORNING
     Dates: start: 2009
  10. NEURONTIN [Suspect]
     Active Substance: GABAPENTIN
     Indication: PARAESTHESIA
  11. LIPITOR [Concomitant]
     Active Substance: ATORVASTATIN CALCIUM
     Indication: BLOOD CHOLESTEROL
     Dosage: 40MG TABLET AT NIGHT
  12. LYRICA [Suspect]
     Active Substance: PREGABALIN
     Indication: NEUROPATHY PERIPHERAL
     Dosage: 50 MG TABLET FIVE TIMES DAILY
     Route: 065
     Dates: start: 1989
  13. VASOTEC [Concomitant]
     Active Substance: ENALAPRIL MALEATE
     Indication: HYPERTENSION
     Dosage: 10MG TABLET TWICE DAILY
  14. METOPROLOL. [Concomitant]
     Active Substance: METOPROLOL
     Indication: ARRHYTHMIA
     Dosage: 25MG TABLET, 1/2 TABLET IN THE MORNING
     Dates: start: 2007
  15. FOLIC ACID. [Concomitant]
     Active Substance: FOLIC ACID
     Dosage: 1MG TABLET ONCE DAILY
     Dates: start: 2006
  16. ESTROVEN [Concomitant]
     Active Substance: DIETARY SUPPLEMENT
     Indication: HOT FLUSH
     Dosage: 1 TABLET IN THE MORNING WITH BREAKFAST
     Dates: start: 2008
  17. ZETIA [Concomitant]
     Active Substance: EZETIMIBE
     Indication: BLOOD CHOLESTEROL
     Dosage: 10MG TABLET AT NIGHT
     Dates: start: 20151221
  18. NEURONTIN [Suspect]
     Active Substance: GABAPENTIN
     Indication: BURNING SENSATION
     Dosage: UNKNOWN
     Route: 065
  19. VITAMIN B COMPLEX [Concomitant]
     Active Substance: CYANOCOBALAMIN\DEXPANTHENOL\NIACINAMIDE\PYRIDOXINE HYDROCHLORIDE\RIBOFLAVIN 5^-PHOSPHATE SODIUM\THIAMINE HYDROCHLORIDE\VITAMIN B COMPLEX
     Dosage: 1 TABLET AT NIGHTUNK
     Dates: start: 2015
  20. KLOR-CON [Concomitant]
     Active Substance: POTASSIUM CHLORIDE
     Dosage: 20MEQ TABLET, THREE TIMES DAILY
  21. FUROSEMIDE. [Concomitant]
     Active Substance: FUROSEMIDE
     Indication: PROPHYLAXIS
     Dosage: 40MG TABLET ONCE DAILY
     Dates: start: 1995

REACTIONS (4)
  - Drug effect decreased [Not Recovered/Not Resolved]
  - Insomnia [Unknown]
  - Arthritis [Unknown]
  - Constipation [Unknown]

NARRATIVE: CASE EVENT DATE: 2015
